FAERS Safety Report 9276228 (Version 1)
Quarter: 2012Q4

REPORT INFORMATION
  Report Type: Spontaneous
  Country: CH (occurrence: None)
  Receive Date: 20121109
  Receipt Date: 20121109
  Transmission Date: 20130627
  Serious: Yes (Death)
  Sender: FDA-Public Use
  Company Number: 2012S1000102

PATIENT
  Age: 43 Year

DRUGS (1)
  1. CUBICIN (DAPTOMYCIN) [Suspect]
     Indication: ENTEROCOCCUS FAECIUM INFECTION

REACTIONS (1)
  - Treatment failure [None]
